FAERS Safety Report 7401449-5 (Version None)
Quarter: 2011Q2

REPORT INFORMATION
  Report Type: 
  Country: None (occurrence: None)
  Receive Date: 20110407
  Receipt Date: 20110325
  Transmission Date: 20111010
  Serious: Yes (Hospitalization)
  Sender: FDA-Public Use
  Company Number: US-MYLANLABS-2011S1006517

PATIENT
  Age: 82 Year
  Sex: Female

DRUGS (17)
  1. AMITRIPTYLINE [Interacting]
     Indication: INSOMNIA
     Route: 065
  2. BUMETANIDE [Concomitant]
     Indication: DIURETIC THERAPY
     Route: 065
  3. CALCITRIOL [Concomitant]
     Route: 065
  4. COLECALCIFEROL [Concomitant]
     Route: 065
  5. FERROUS SULFATE TAB [Concomitant]
     Indication: IRON DEFICIENCY ANAEMIA
     Route: 065
  6. TIAGABINE HCL [Concomitant]
     Indication: NEURALGIA
     Route: 065
  7. OXYCODONE HCL [Concomitant]
     Indication: PAIN
     Dosage: AS NEEDED
     Route: 065
  8. ALENDRONIC ACID [Concomitant]
     Indication: OSTEOPOROSIS
     Route: 065
  9. CYANOCOBALAMIN [Concomitant]
     Route: 065
  10. TIZANIDINE [Concomitant]
     Dosage: AT NOON AND NIGHT
     Route: 065
  11. ASPIRIN [Concomitant]
     Route: 065
  12. LIDOCAINE [Concomitant]
     Indication: BACK PAIN
     Dosage: 12 HOURS ON AND 12 HOURS OFF
     Route: 062
  13. PANTOPRAZOLE [Concomitant]
     Indication: GASTROOESOPHAGEAL REFLUX DISEASE
     Route: 065
  14. TOLTERODINE TARTRATE [Concomitant]
     Route: 065
  15. AMIODARONE [Suspect]
     Indication: ATRIAL FIBRILLATION
     Route: 065
  16. SIMVASTATIN [Concomitant]
     Indication: HYPERLIPIDAEMIA
     Route: 065
  17. TIZANIDINE [Concomitant]
     Indication: BACK PAIN
     Dosage: IN THE MORNING
     Route: 065

REACTIONS (2)
  - DRUG INTERACTION [None]
  - EXTRAPYRAMIDAL DISORDER [None]
